FAERS Safety Report 4780801-0 (Version None)
Quarter: 2005Q3

REPORT INFORMATION
  Report Type: 
  Country: None (occurrence: None)
  Receive Date: 20050927
  Receipt Date: 20050922
  Transmission Date: 20060218
  Serious: Yes (Death, Hospitalization, Other)
  Sender: FDA-Public Use
  Company Number: US-MERCK-0509USA03461

PATIENT
  Age: 87 Year
  Sex: Female
  Weight: 61 kg

DRUGS (7)
  1. VIOXX [Suspect]
     Indication: ARTHRITIS
     Route: 048
     Dates: start: 20010101, end: 20020101
  2. CELEBREX [Concomitant]
     Route: 065
  3. PROTONIX [Concomitant]
     Route: 065
  4. LEVAQUIN [Concomitant]
     Route: 065
  5. HISTUSSIN-HC SYRUP [Concomitant]
     Route: 065
  6. SORBITOL [Concomitant]
     Route: 065
  7. PERMAX [Concomitant]
     Route: 065

REACTIONS (7)
  - ARTHROPATHY [None]
  - CATARACT [None]
  - CATARACT OPERATION [None]
  - CEREBROVASCULAR ACCIDENT [None]
  - DEATH [None]
  - MYOCARDIAL INFARCTION [None]
  - UPPER LIMB FRACTURE [None]
